FAERS Safety Report 7619206-3 (Version None)
Quarter: 2011Q3

REPORT INFORMATION
  Report Type: 
  Country: None (occurrence: None)
  Receive Date: 20110718
  Receipt Date: 20110708
  Transmission Date: 20111222
  Serious: Yes (Hospitalization)
  Sender: FDA-Public Use
  Company Number: PHHO2007US19633

PATIENT
  Sex: Male

DRUGS (1)
  1. ZORTRESS [Suspect]
     Indication: HEART TRANSPLANT
     Dosage: 0.75 MG, BID
     Route: 048
     Dates: start: 20071005, end: 20071123

REACTIONS (3)
  - IMPLANT SITE EFFUSION [None]
  - PERICARDIAL EFFUSION [None]
  - ANAEMIA [None]
